FAERS Safety Report 9115921 (Version 1)
Quarter: 2013Q1

REPORT INFORMATION
  Report Type: Spontaneous
  Country: US (occurrence: US)
  Receive Date: 20130225
  Receipt Date: 20130225
  Transmission Date: 20140127
  Serious: Yes (Hospitalization, Other)
  Sender: FDA-Public Use
  Company Number: US-009507513-1206USA02948

PATIENT
  Sex: Female

DRUGS (4)
  1. FOSAMAX [Suspect]
     Indication: OSTEOPOROSIS
     Dosage: 70 MG, QW
     Route: 048
     Dates: start: 20061031, end: 20071106
  2. FOSAMAX [Suspect]
     Indication: OSTEOPENIA
  3. ALENDRONATE SODIUM [Suspect]
     Indication: OSTEOPENIA
     Dosage: 70 MG, QW
     Route: 048
     Dates: start: 20080208, end: 20111115
  4. ALENDRONATE SODIUM [Suspect]
     Indication: OSTEOPOROSIS

REACTIONS (12)
  - Femur fracture [Unknown]
  - Open reduction of fracture [Unknown]
  - Contusion [Unknown]
  - Contusion [Unknown]
  - Headache [Unknown]
  - Nausea [Unknown]
  - Low turnover osteopathy [Unknown]
  - Haemorrhoid operation [Unknown]
  - Oropharyngeal pain [Unknown]
  - Hormone therapy [Unknown]
  - Syncope [Unknown]
  - Spinal osteoarthritis [Unknown]
